FAERS Safety Report 13001298 (Version 1)
Quarter: 2016Q4

REPORT INFORMATION
  Report Type: Spontaneous
  Country: US (occurrence: US)
  Receive Date: 20161206
  Receipt Date: 20161206
  Transmission Date: 20170207
  Serious: No
  Sender: FDA-Public Use
  Company Number: US-PFIZER INC-2016560743

PATIENT
  Age: 3 Decade
  Sex: Female
  Weight: 73 kg

DRUGS (1)
  1. ERYTHROMYCIN. [Suspect]
     Active Substance: ERYTHROMYCIN
     Indication: CYSTITIS
     Dosage: UNK

REACTIONS (1)
  - Rash erythematous [Unknown]
